FAERS Safety Report 8987741 (Version 1)
Quarter: 2012Q4

REPORT INFORMATION
  Report Type: 
  Country: US (occurrence: US)
  Receive Date: 20121227
  Receipt Date: 20121227
  Transmission Date: 20130627
  Serious: No
  Sender: FDA-Public Use
  Company Number: US-PFIZER INC-2012326960

PATIENT
  Sex: Female

DRUGS (2)
  1. INFANT ADVIL CONCENTRATED DROPS [Suspect]
     Indication: CRYING
     Dosage: 0.625 ml, UNK
  2. INFANT ADVIL CONCENTRATED DROPS [Suspect]
     Indication: STOMACH DISCOMFORT

REACTIONS (2)
  - Vomiting [Unknown]
  - Insomnia [Unknown]
